FAERS Safety Report 24889804 (Version 3)
Quarter: 2025Q1

REPORT INFORMATION
  Report Type: Spontaneous
  Country: BR (occurrence: BR)
  Receive Date: 20250127
  Receipt Date: 20250210
  Transmission Date: 20250408
  Serious: Yes (Other)
  Sender: INSUD PHARMA
  Company Number: BR-EXELTIS PHARMACEUTICAL HOLDING, S.L.-2410BR07911

PATIENT
  Age: 34 Year
  Sex: Female
  Weight: 52 kg

DRUGS (3)
  1. DROSPIRENONE [Suspect]
     Active Substance: DROSPIRENONE
     Indication: Contraception
     Dosage: 4 MILLIGRAM, QD
     Route: 048
     Dates: start: 202407
  2. PAROXETINE [Concomitant]
     Active Substance: PAROXETINE
     Indication: Product used for unknown indication
  3. APIXABAN [Concomitant]
     Active Substance: APIXABAN
     Dosage: 1 DOSAGE FORM, QD

REACTIONS (14)
  - Surgery [Unknown]
  - Lower limb fracture [Unknown]
  - Premenstrual syndrome [Not Recovered/Not Resolved]
  - Abdominal pain [Not Recovered/Not Resolved]
  - Acne [Not Recovered/Not Resolved]
  - Mood altered [Not Recovered/Not Resolved]
  - Heavy menstrual bleeding [Unknown]
  - Anxiety [Recovering/Resolving]
  - Seborrhoea [Not Recovered/Not Resolved]
  - Disturbance in attention [Recovering/Resolving]
  - Dandruff [Not Recovered/Not Resolved]
  - Tobacco interaction [Unknown]
  - Intermenstrual bleeding [Not Recovered/Not Resolved]
  - Nail picking [Unknown]

NARRATIVE: CASE EVENT DATE: 20240701
